FAERS Safety Report 18574945 (Version 2)
Quarter: 2020Q4

REPORT INFORMATION
  Report Type: Spontaneous
  Country: CA (occurrence: CA)
  Receive Date: 20201203
  Receipt Date: 20201223
  Transmission Date: 20210114
  Serious: Yes (Other)
  Sender: FDA-Public Use
  Company Number: CA-PFIZER INC-2020470928

PATIENT
  Age: 46 Year
  Sex: Female
  Weight: 140 kg

DRUGS (5)
  1. CALCIUM [Concomitant]
     Active Substance: CALCIUM
     Dosage: UNK (EVERY 2 WEEKS)
     Dates: start: 2018
  2. ZOLOFT [Suspect]
     Active Substance: SERTRALINE HYDROCHLORIDE
     Dosage: 100 MG
     Dates: start: 2020
  3. VITAMIN B [Concomitant]
     Active Substance: VITAMIN B
     Dosage: UNK (EVERY 2 WEEKS)
     Dates: start: 2018
  4. ZOLOFT [Suspect]
     Active Substance: SERTRALINE HYDROCHLORIDE
     Indication: OBSESSIVE-COMPULSIVE DISORDER
     Dosage: 100 MG, DAILY
     Dates: start: 202009
  5. ZOLOFT [Suspect]
     Active Substance: SERTRALINE HYDROCHLORIDE
     Dosage: 125 MG
     Dates: start: 2020

REACTIONS (3)
  - Alopecia [Not Recovered/Not Resolved]
  - Arthropathy [Recovered/Resolved]
  - Arthralgia [Recovered/Resolved]

NARRATIVE: CASE EVENT DATE: 2020
